FAERS Safety Report 10348216 (Version 3)
Quarter: 2014Q4

REPORT INFORMATION
  Report Type: Spontaneous
  Country: US (occurrence: US)
  Receive Date: 20140729
  Receipt Date: 20141014
  Transmission Date: 20150528
  Serious: Yes (Life-Threatening, Hospitalization)
  Sender: FDA-Public Use
  Company Number: US-BAYER-2014-109912

PATIENT
  Age: 29 Year
  Sex: Female
  Weight: 84 kg

DRUGS (4)
  1. ORTHO TRI CYCLEN [Concomitant]
     Active Substance: ETHINYL ESTRADIOL\NORGESTIMATE
     Dosage: UNK
     Dates: start: 2001
  2. MIRENA [Suspect]
     Active Substance: LEVONORGESTREL
     Indication: CONTRACEPTION
     Dosage: 20 MCG/24HR, CONT
     Route: 015
     Dates: start: 20110712, end: 20121115
  3. SERTRALINE [Concomitant]
     Active Substance: SERTRALINE HYDROCHLORIDE
  4. CEPHALEXIN. [Concomitant]
     Active Substance: CEPHALEXIN
     Dosage: 500 MG, BID
     Route: 048
     Dates: start: 20120816

REACTIONS (18)
  - Uterine perforation [None]
  - Injury [None]
  - Anxiety [Not Recovered/Not Resolved]
  - Infection [None]
  - Abdominal pain [None]
  - Drug ineffective [None]
  - Depression [Not Recovered/Not Resolved]
  - Back pain [None]
  - Pregnancy with contraceptive device [None]
  - Complication of device removal [None]
  - Emotional distress [None]
  - Uterine scar [None]
  - Anhedonia [None]
  - Pain [None]
  - Infected dermal cyst [None]
  - Placenta praevia [None]
  - General physical health deterioration [None]
  - Device dislocation [None]

NARRATIVE: CASE EVENT DATE: 2012
